FAERS Safety Report 8081016-3 (Version None)
Quarter: 2012Q1

REPORT INFORMATION
  Report Type: 
  Country: None (occurrence: None)
  Receive Date: 20120130
  Receipt Date: 20120120
  Transmission Date: 20120608
  Serious: Yes (Hospitalization)
  Sender: FDA-Public Use
  Company Number: PHFR2012GB000490

PATIENT
  Sex: Female

DRUGS (2)
  1. CLOZARIL [Suspect]
     Indication: SCHIZOPHRENIA
     Dosage: UNK
     Route: 048
     Dates: start: 20070502
  2. CLOZARIL [Suspect]
     Dosage: 275 MG, UNK
     Route: 048

REACTIONS (5)
  - HIP FRACTURE [None]
  - ASTHENIA [None]
  - HAEMOGLOBIN DECREASED [None]
  - PLATELET COUNT INCREASED [None]
  - ANTIPSYCHOTIC DRUG LEVEL ABOVE THERAPEUTIC [None]
